FAERS Safety Report 7555281-2 (Version None)
Quarter: 2011Q2

REPORT INFORMATION
  Report Type: 
  Country: None (occurrence: None)
  Receive Date: 20110617
  Receipt Date: 20110615
  Transmission Date: 20111010
  Serious: Yes (Disabling)
  Sender: FDA-Public Use
  Company Number: PHHY2011AU47851

PATIENT
  Sex: Male
  Weight: 70 kg

DRUGS (1)
  1. LAMISIL [Suspect]
     Indication: PARONYCHIA
     Dosage: 250 MG, QD
     Route: 048
     Dates: start: 20110420, end: 20110427

REACTIONS (1)
  - ATRIAL FIBRILLATION [None]
